FAERS Safety Report 6971507-8 (Version None)
Quarter: 2010Q3

REPORT INFORMATION
  Report Type: 
  Country: None (occurrence: None)
  Receive Date: 20100908
  Receipt Date: 20100826
  Transmission Date: 20110219
  Serious: Yes (Other)
  Sender: FDA-Public Use
  Company Number: ES-PFIZER INC-2010107805

PATIENT
  Age: 4 Year
  Sex: Male

DRUGS (2)
  1. PHENYTOIN SODIUM [Suspect]
     Indication: GRAND MAL CONVULSION
     Dosage: 15 MG/KG, SINGLE
     Route: 040
  2. PHENYTOIN SODIUM [Suspect]
     Dosage: 5 MG/KG, 1X/DAY
     Route: 041

REACTIONS (1)
  - DELIRIUM TREMENS [None]
